FAERS Safety Report 6154900-5 (Version None)
Quarter: 2009Q2

REPORT INFORMATION
  Report Type: 
  Country: None (occurrence: None)
  Receive Date: 20090414
  Receipt Date: 20090407
  Transmission Date: 20091009
  Serious: Yes (Hospitalization)
  Sender: FDA-Public Use
  Company Number: FR-PFIZER INC-2009194117

PATIENT

DRUGS (9)
  1. TAHOR [Suspect]
     Dosage: UNK
     Route: 048
     Dates: start: 20080101, end: 20090211
  2. VOLTAREN [Suspect]
     Dosage: 50 MG 2X/WEEK
     Route: 048
     Dates: start: 20081101, end: 20090201
  3. KARDEGIC [Suspect]
     Indication: PROPHYLAXIS
     Dosage: 75 MG, 1X/DAY
     Dates: start: 20080101, end: 20090211
  4. STAGID [Suspect]
     Indication: DIABETES MELLITUS
     Dosage: 700 MG, 3X/DAY
     Route: 048
     Dates: start: 20080101, end: 20090211
  5. AMARYL [Suspect]
     Indication: DIABETES MELLITUS
     Dosage: 2 MG, 1X/DAY
     Route: 048
     Dates: start: 20080901, end: 20090211
  6. DAFALGAN [Suspect]
     Dosage: 500 MG 2X/WEEK
     Route: 048
     Dates: start: 20081101, end: 20090201
  7. NOROXIN [Suspect]
     Indication: PYREXIA
     Dosage: 400 MG, 2X/DAY
     Route: 048
     Dates: start: 20090203, end: 20090208
  8. DICETEL [Suspect]
     Indication: PYREXIA
     Dosage: 100 MG, 1X/DAY
     Route: 048
     Dates: start: 20090203, end: 20090208
  9. TIORFAN [Suspect]
     Indication: PYREXIA
     Dosage: 300 MG, 3X/DAY
     Dates: start: 20090203, end: 20090208

REACTIONS (1)
  - CYTOLYTIC HEPATITIS [None]
